FAERS Safety Report 16131479 (Version 1)
Quarter: 2019Q1

REPORT INFORMATION
  Report Type: Spontaneous
  Country: US (occurrence: US)
  Receive Date: 20190328
  Receipt Date: 20190328
  Transmission Date: 20190418
  Serious: No
  Sender: FDA-Public Use
  Company Number: US-SHIRE-US201910107

PATIENT
  Age: 11 Year
  Sex: Male

DRUGS (1)
  1. GAMMAGARD LIQUID [Suspect]
     Active Substance: HUMAN IMMUNOGLOBULIN G
     Indication: CHRONIC INFLAMMATORY DEMYELINATING POLYRADICULONEUROPATHY
     Dosage: 15 GRAM, 1X/WEEK
     Route: 042
     Dates: start: 201106

REACTIONS (8)
  - Paraesthesia [Unknown]
  - Off label use [Unknown]
  - Lip haemorrhage [Unknown]
  - Skin discolouration [Unknown]
  - Pruritus [Unknown]
  - Middle insomnia [Unknown]
  - Asthenia [Unknown]
  - Dizziness [Unknown]
